FAERS Safety Report 12468386 (Version 2)
Quarter: 2016Q3

REPORT INFORMATION
  Report Type: Report from Study
  Country: NL (occurrence: NL)
  Receive Date: 20160615
  Receipt Date: 20160708
  Transmission Date: 20161109
  Serious: Yes (Death, Hospitalization)
  Sender: FDA-Public Use
  Company Number: NL-AMGEN-NLDSL2016061591

PATIENT
  Age: 73 Year
  Sex: Female

DRUGS (2)
  1. XGEVA [Suspect]
     Active Substance: DENOSUMAB
     Dosage: UNK
     Route: 058
  2. XGEVA [Suspect]
     Active Substance: DENOSUMAB
     Indication: PROPHYLAXIS
     Dosage: 120 MG (1.70ML), Q4WK
     Route: 058

REACTIONS (2)
  - Urinary tract infection [Recovered/Resolved]
  - Death [Fatal]

NARRATIVE: CASE EVENT DATE: 20160509
